FAERS Safety Report 5390067-9 (Version None)
Quarter: 2007Q3

REPORT INFORMATION
  Report Type: 
  Country: None (occurrence: None)
  Receive Date: 20070718
  Receipt Date: 20070717
  Transmission Date: 20080115
  Serious: Yes (Hospitalization)
  Sender: FDA-Public Use
  Company Number: A0664279A

PATIENT
  Age: 59 Year
  Sex: Male

DRUGS (24)
  1. COMMIT [Suspect]
     Dosage: 4MG EIGHT TIMES PER DAY
     Route: 002
     Dates: start: 20070521
  2. NEFAZODONE HCL [Concomitant]
  3. FISH OIL [Concomitant]
  4. LISINOPRIL [Concomitant]
  5. PROSCAR [Concomitant]
  6. ASPIRIN [Concomitant]
  7. ACETAMINOPHEN [Concomitant]
  8. DIAZEPAM [Concomitant]
  9. DOCUSATE SODIUM [Concomitant]
  10. MORPHINE [Concomitant]
  11. ZOLPIDEM TARTRATE [Concomitant]
  12. INSULIN [Concomitant]
  13. CALCIUM + D. VITAMIN [Concomitant]
  14. FOLIC ACID [Concomitant]
  15. METAMUCIL [Concomitant]
  16. LAXATIVE [Concomitant]
  17. FLOMAX [Concomitant]
  18. LEVOTHYROXINE SODIUM [Concomitant]
  19. OMEPRAZOLE [Concomitant]
  20. FLUDROCORTISONE ACETATE [Concomitant]
  21. NIACIN [Concomitant]
  22. FLUVASTATIN [Concomitant]
  23. MULTI-VITAMIN [Concomitant]
  24. POTASSIUM CHLORIDE [Concomitant]

REACTIONS (5)
  - ANXIETY [None]
  - BLOOD POTASSIUM DECREASED [None]
  - BLOOD PRESSURE DECREASED [None]
  - INTENTIONAL DRUG MISUSE [None]
  - NICOTINE DEPENDENCE [None]
